FAERS Safety Report 20719097 (Version 7)
Quarter: 2024Q2

REPORT INFORMATION
  Report Type: Report from Study
  Country: US (occurrence: US)
  Receive Date: 20220418
  Receipt Date: 20240606
  Transmission Date: 20240716
  Serious: Yes (Hospitalization, Other)
  Sender: FDA-Public Use
  Company Number: US-ABBVIE-22K-163-4361316-00

PATIENT
  Age: 44 Year
  Sex: Female
  Weight: 74 kg

DRUGS (11)
  1. HUMIRA [Suspect]
     Active Substance: ADALIMUMAB
     Indication: Rheumatoid arthritis
     Dosage: CITRATE FREE, FORM STRENGTH 40 MILLIGRAM
     Route: 058
     Dates: start: 20211116
  2. HUMIRA [Suspect]
     Active Substance: ADALIMUMAB
     Dosage: CITRATE FREE, FORM STRENGTH 40 MILLIGRAM
     Route: 058
  3. HUMIRA [Suspect]
     Active Substance: ADALIMUMAB
     Dosage: CITRATE FREE, FORM STRENGTH 40 MILLIGRAM
     Route: 058
  4. HUMIRA [Suspect]
     Active Substance: ADALIMUMAB
     Dosage: CITRATE FREE, FORM STRENGTH 40 MILLIGRAM
     Route: 058
  5. HUMIRA [Suspect]
     Active Substance: ADALIMUMAB
     Dosage: CITRATE FREE, FORM STRENGTH 40 MILLIGRAM
     Route: 058
  6. HUMIRA [Suspect]
     Active Substance: ADALIMUMAB
     Dosage: CITRATE FREE, FORM STRENGTH 40 MILLIGRAM
     Route: 058
  7. Covid-19 Vaccine [Concomitant]
     Indication: COVID-19 immunisation
     Dosage: FIRST DOSE
     Route: 030
     Dates: start: 20210502, end: 20210502
  8. Covid-19 Vaccine [Concomitant]
     Indication: COVID-19 immunisation
     Dosage: SECOND DOSE
     Route: 030
     Dates: start: 20210601, end: 20210601
  9. Covid-19 Vaccine [Concomitant]
     Indication: COVID-19 immunisation
     Dosage: BOOSTER DOSE
     Route: 030
     Dates: start: 20211217, end: 20211217
  10. ZITHROMAX [Suspect]
     Active Substance: AZITHROMYCIN DIHYDRATE
     Indication: Product used for unknown indication
     Route: 065
  11. METHOTREXATE [Concomitant]
     Active Substance: METHOTREXATE
     Indication: Product used for unknown indication

REACTIONS (25)
  - Systemic lupus erythematosus [Recovering/Resolving]
  - Medical device site pruritus [Recovering/Resolving]
  - Swelling face [Recovering/Resolving]
  - Medical device site swelling [Recovering/Resolving]
  - Nasopharyngitis [Recovering/Resolving]
  - Hypertension [Unknown]
  - Drug specific antibody present [Unknown]
  - Urinary tract infection [Recovered/Resolved]
  - Medical device site bruise [Recovering/Resolving]
  - Cough [Not Recovered/Not Resolved]
  - Rash erythematous [Recovering/Resolving]
  - Visual impairment [Unknown]
  - Peripheral swelling [Recovering/Resolving]
  - Musculoskeletal disorder [Unknown]
  - Neck pain [Unknown]
  - Rheumatoid arthritis [Recovering/Resolving]
  - Nasopharyngitis [Recovered/Resolved with Sequelae]
  - Pain [Unknown]
  - Pain in extremity [Unknown]
  - Bone pain [Not Recovered/Not Resolved]
  - Dizziness [Unknown]
  - Aphonia [Unknown]
  - Headache [Unknown]
  - Aerophagia [Unknown]
  - Choking [Unknown]

NARRATIVE: CASE EVENT DATE: 20220401
